FAERS Safety Report 10307017 (Version 2)
Quarter: 2014Q3

REPORT INFORMATION
  Report Type: Report from Study
  Country: MX (occurrence: MX)
  Receive Date: 20140715
  Receipt Date: 20140715
  Transmission Date: 20150326
  Serious: Yes (Hospitalization, Other)
  Sender: FDA-Public Use
  Company Number: PHHY2014MX080407

PATIENT
  Age: 79 Year
  Sex: Female

DRUGS (5)
  1. EXFORGE HCT [Suspect]
     Active Substance: AMLODIPINE BESYLATE\HYDROCHLOROTHIAZIDE\VALSARTAN
     Indication: HYPERTENSION
     Dosage: 1 DF (160/5/12.5 MG) DAILY
     Route: 048
  2. EXFORGE HCT [Suspect]
     Active Substance: AMLODIPINE BESYLATE\HYDROCHLOROTHIAZIDE\VALSARTAN
     Dosage: 0.5 DF (160/5/12.5 MG) DAILY
     Route: 048
  3. OMEPRAZOLE. [Concomitant]
     Active Substance: OMEPRAZOLE
     Dosage: 1 DF DAILY
     Dates: start: 201404
  4. SERUM ALBUMIN HUMAN [Concomitant]
     Dosage: UNK UKN, UNK
     Dates: start: 20140525
  5. METOPROLOL [Concomitant]
     Active Substance: METOPROLOL
     Dosage: UNK UKN, UNK
     Dates: start: 20140525

REACTIONS (10)
  - Feeling abnormal [Recovered/Resolved]
  - Tension [Recovered/Resolved]
  - Pollakiuria [Not Recovered/Not Resolved]
  - Erythema [Not Recovered/Not Resolved]
  - Eructation [Recovering/Resolving]
  - Syncope [Recovered/Resolved]
  - Hypertension [Not Recovered/Not Resolved]
  - Tinnitus [Not Recovered/Not Resolved]
  - Visual impairment [Not Recovered/Not Resolved]
  - Wrong technique in drug usage process [Not Recovered/Not Resolved]

NARRATIVE: CASE EVENT DATE: 20140525
